FAERS Safety Report 19425787 (Version 1)
Quarter: 2021Q2

REPORT INFORMATION
  Report Type: Spontaneous
  Country: JP (occurrence: JP)
  Receive Date: 20210616
  Receipt Date: 20210616
  Transmission Date: 20210717
  Serious: Yes (Death, Hospitalization, Other)
  Sender: FDA-Public Use
  Company Number: JP-LUPIN PHARMACEUTICALS INC.-2021-09475

PATIENT
  Age: 87 Year
  Sex: Male

DRUGS (4)
  1. HEPARIN [Concomitant]
     Active Substance: HEPARIN SODIUM
     Indication: ANTICOAGULANT THERAPY
     Dosage: UNK (STOPPED)
     Route: 065
  2. THROMBOPLASTIN [Concomitant]
     Active Substance: THROMBOPLASTIN
     Indication: HENOCH-SCHONLEIN PURPURA
     Dosage: UNK
     Route: 065
  3. BETAMETHASONE. [Suspect]
     Active Substance: BETAMETHASONE
     Indication: HENOCH-SCHONLEIN PURPURA
     Dosage: 4 MILLIGRAM, QD
     Route: 065
  4. HEPARIN [Concomitant]
     Active Substance: HEPARIN SODIUM
     Indication: HAEMODIALYSIS

REACTIONS (4)
  - Psychotic disorder [Unknown]
  - Renal failure [Fatal]
  - Off label use [Unknown]
  - Drug ineffective for unapproved indication [Unknown]
